FAERS Safety Report 15991572 (Version 3)
Quarter: 2019Q3

REPORT INFORMATION
  Report Type: Spontaneous
  Country: GR (occurrence: GR)
  Receive Date: 20190221
  Receipt Date: 20190809
  Transmission Date: 20191004
  Serious: Yes (Hospitalization, Other)
  Sender: FDA-Public Use
  Company Number: GR-MYLANLABS-2019M1015903

PATIENT
  Age: 37 Year
  Sex: Male

DRUGS (9)
  1. CLOXACILLIN [Suspect]
     Active Substance: CLOXACILLIN
     Indication: ANTIBIOTIC THERAPY
     Dosage: 2 GRAM, Q4H (2 G PER 4 HOURS)
     Route: 042
  2. PIPERACILLIN/TAZOBACTAM [Suspect]
     Active Substance: PIPERACILLIN SODIUM\TAZOBACTAM SODIUM
     Indication: ANTIBIOTIC THERAPY
     Dosage: 6.75 GRAM, QD (2.25 G, 3X/DAY (PER 8 HOURS)
     Route: 042
  3. RIFAMPICIN [Suspect]
     Active Substance: RIFAMPIN
     Indication: ANTIBIOTIC THERAPY
     Dosage: 600 MILLIGRAM, QD 600 MG, 1X/DAY(PER 24 H)
     Route: 042
  4. VANCOMYCIN [Suspect]
     Active Substance: VANCOMYCIN
     Indication: STAPHYLOCOCCAL INFECTION
     Dosage: UNK
     Route: 065
  5. CLOXACILLIN [Suspect]
     Active Substance: CLOXACILLIN
     Dosage: 500 MILLIGRAM 500 MG PER 4 HOURS
     Route: 042
  6. DAPTOMYCIN. [Suspect]
     Active Substance: DAPTOMYCIN
     Indication: ANTIBIOTIC THERAPY
     Dosage: 500 MILLIGRAM 500 MG PER 48 HOURS
     Route: 042
  7. LINEZOLID. [Suspect]
     Active Substance: LINEZOLID
     Indication: ANTIBIOTIC THERAPY
     Dosage: 1200 MILLIGRAM, QD 600 MG, 2X/DAY (PER 12 HOURS)
     Route: 042
  8. MICAFUNGIN. [Suspect]
     Active Substance: MICAFUNGIN SODIUM
     Indication: ANTIBIOTIC THERAPY
     Dosage: 50 MILLIGRAM, QD 50 MG, 1X/DAY (PER 24 HOURS)
     Route: 042
  9. CEFTRIAXONE. [Suspect]
     Active Substance: CEFTRIAXONE
     Indication: ANTIBIOTIC THERAPY
     Dosage: UNK
     Route: 065

REACTIONS (9)
  - Condition aggravated [Unknown]
  - Oedema peripheral [Unknown]
  - Drug ineffective [Unknown]
  - Endocarditis bacterial [Unknown]
  - Restlessness [Unknown]
  - Dyspnoea [Unknown]
  - Sleep disorder [Unknown]
  - Oliguria [Unknown]
  - Oxygen saturation decreased [Unknown]
